FAERS Safety Report 11636936 (Version 10)
Quarter: 2016Q3

REPORT INFORMATION
  Report Type: Report from Study
  Country: JP (occurrence: JP)
  Receive Date: 20151016
  Receipt Date: 20160831
  Transmission Date: 20161109
  Serious: Yes (Death, Life-Threatening, Hospitalization, Other)
  Sender: FDA-Public Use
  Company Number: JP-INCYTE CORPORATION-2015IN005120

PATIENT
  Age: 72 Year
  Sex: Male
  Weight: 57 kg

DRUGS (8)
  1. PREDNISOLONE SODIUM SUCCINATE [Suspect]
     Active Substance: PREDNISOLONE SODIUM SUCCINATE
     Dosage: 5 MG, QD
     Route: 048
     Dates: start: 20150902, end: 20150915
  2. JAKAFI [Suspect]
     Active Substance: RUXOLITINIB
     Indication: PRIMARY MYELOFIBROSIS
     Dosage: 20 MG, BID
     Route: 048
     Dates: start: 20150313, end: 20150706
  3. PREDNISOLONE SODIUM SUCCINATE [Suspect]
     Active Substance: PREDNISOLONE SODIUM SUCCINATE
     Dosage: 10 MG, QD
     Route: 048
     Dates: start: 20150819, end: 20150901
  4. PREDNISOLONE SODIUM SUCCINATE [Suspect]
     Active Substance: PREDNISOLONE SODIUM SUCCINATE
     Dosage: 2.5 MG, QD
     Route: 048
     Dates: start: 20150916
  5. PREDNISOLONE SODIUM SUCCINATE [Suspect]
     Active Substance: PREDNISOLONE SODIUM SUCCINATE
     Indication: PRIMARY MYELOFIBROSIS
     Dosage: 15 MG, QD
     Route: 048
     Dates: start: 20150807, end: 20150818
  6. HYDREA [Concomitant]
     Active Substance: HYDROXYUREA
     Indication: MYELOFIBROSIS
     Dosage: 500 MG, QD
     Route: 048
     Dates: end: 20150313
  7. JAKAFI [Suspect]
     Active Substance: RUXOLITINIB
     Dosage: 25 MG, BID
     Route: 048
     Dates: start: 20150707
  8. HYDREA [Concomitant]
     Active Substance: HYDROXYUREA
     Indication: PRIMARY MYELOFIBROSIS

REACTIONS (8)
  - Disseminated tuberculosis [Fatal]
  - Pyrexia [Recovered/Resolved]
  - Myelofibrosis [Not Recovered/Not Resolved]
  - Lymphocyte count decreased [Not Recovered/Not Resolved]
  - Haemoglobin decreased [Not Recovered/Not Resolved]
  - Blood pressure systolic increased [Unknown]
  - Weight increased [Unknown]
  - Blood pressure diastolic decreased [Unknown]

NARRATIVE: CASE EVENT DATE: 20150317
